FAERS Safety Report 7389692-5 (Version None)
Quarter: 2011Q2

REPORT INFORMATION
  Report Type: 
  Country: None (occurrence: None)
  Receive Date: 20110401
  Receipt Date: 20110324
  Transmission Date: 20111010
  Serious: Yes (Hospitalization, Other)
  Sender: FDA-Public Use
  Company Number: US-MERCK-1004USA03498

PATIENT
  Age: 65 Year
  Sex: Female
  Weight: 45 kg

DRUGS (5)
  1. SYNTHROID [Concomitant]
     Indication: HYPOTHYROIDISM
     Route: 065
  2. FOSAMAX [Suspect]
     Indication: OSTEOPOROSIS
     Route: 048
     Dates: start: 20000101, end: 20080201
  3. HORMONES (UNSPECIFIED) [Concomitant]
     Indication: HORMONE REPLACEMENT THERAPY
     Route: 065
     Dates: start: 19970101, end: 20000101
  4. VIVELLE [Concomitant]
     Indication: HORMONE REPLACEMENT THERAPY
     Route: 065
     Dates: start: 20000101, end: 20071201
  5. ACTONEL [Suspect]
     Indication: OSTEOPOROSIS
     Route: 048
     Dates: start: 20080101, end: 20080101

REACTIONS (52)
  - COLONIC POLYP [None]
  - BREAST MASS [None]
  - CERUMEN IMPACTION [None]
  - DYSGEUSIA [None]
  - BASAL CELL CARCINOMA [None]
  - TOOTH DEPOSIT [None]
  - ORAL DISORDER [None]
  - NEURALGIA [None]
  - CERVICOBRACHIAL SYNDROME [None]
  - ARTHRITIS [None]
  - HIP FRACTURE [None]
  - MALIGNANT MELANOMA [None]
  - FEMORAL NECK FRACTURE [None]
  - GASTROINTESTINAL HAEMORRHAGE [None]
  - DIZZINESS [None]
  - OSTEONECROSIS OF JAW [None]
  - TOOTH FRACTURE [None]
  - SINUSITIS [None]
  - HEART RATE IRREGULAR [None]
  - CONSTIPATION [None]
  - BARRETT'S OESOPHAGUS [None]
  - GASTRITIS [None]
  - EXOSTOSIS [None]
  - RECTAL HAEMORRHAGE [None]
  - MENOPAUSAL SYMPTOMS [None]
  - BREAST CANCER [None]
  - SQUAMOUS CELL CARCINOMA [None]
  - OCCULT BLOOD POSITIVE [None]
  - DIVERTICULUM [None]
  - DENTAL CARIES [None]
  - SIALOADENITIS [None]
  - OSTEOPENIA [None]
  - HYPOAESTHESIA [None]
  - TREATMENT NONCOMPLIANCE [None]
  - ORAL TORUS [None]
  - HEADACHE [None]
  - HOT FLUSH [None]
  - CHEST PAIN [None]
  - BREAST CANCER RECURRENT [None]
  - TONGUE ULCERATION [None]
  - OESOPHAGITIS [None]
  - ABSCESS [None]
  - SPINAL OSTEOARTHRITIS [None]
  - SINOBRONCHITIS [None]
  - HYPERCHOLESTEROLAEMIA [None]
  - CHRONIC OBSTRUCTIVE PULMONARY DISEASE [None]
  - DIVERTICULUM INTESTINAL [None]
  - DRY MOUTH [None]
  - OTITIS EXTERNA [None]
  - ORAL PAPILLOMA [None]
  - INAPPROPRIATE SCHEDULE OF DRUG ADMINISTRATION [None]
  - DYSPNOEA [None]
